FAERS Safety Report 18540319 (Version 1)
Quarter: 2020Q4

REPORT INFORMATION
  Report Type: Spontaneous
  Country: SE (occurrence: SE)
  Receive Date: 20201124
  Receipt Date: 20201124
  Transmission Date: 20210114
  Serious: Yes (Hospitalization)
  Sender: FDA-Public Use
  Company Number: SE-TEVA-2020-SE-1851494

PATIENT
  Age: 82 Year
  Sex: Male

DRUGS (7)
  1. TOLTERODINE [Suspect]
     Active Substance: TOLTERODINE
     Indication: POLLAKIURIA
     Dosage: UNIT DOSE : 4 MG
     Route: 048
     Dates: start: 20200922, end: 20200922
  2. ATORVASTATIN [Concomitant]
     Active Substance: ATORVASTATIN
  3. TOLTERODINE [Suspect]
     Active Substance: TOLTERODINE
     Dosage: UNIT DOSE : 4 MG
     Route: 048
     Dates: start: 20200821, end: 20200902
  4. CANDESARTAN CILEXETIL. [Concomitant]
     Active Substance: CANDESARTAN CILEXETIL
  5. TROMBYL [Concomitant]
     Active Substance: ASPIRIN
  6. ALVEDON [Concomitant]
     Active Substance: ACETAMINOPHEN
     Dosage: VB
  7. AMOXICILLIN (ANHYDROUS) [Concomitant]
     Active Substance: AMOXICILLIN

REACTIONS (1)
  - Stevens-Johnson syndrome [Recovered/Resolved]

NARRATIVE: CASE EVENT DATE: 2020
